FAERS Safety Report 9800995 (Version 4)
Quarter: 2014Q1

REPORT INFORMATION
  Report Type: Report from Study
  Country: UA (occurrence: UA)
  Receive Date: 20140107
  Receipt Date: 20140214
  Transmission Date: 20141002
  Serious: Yes (Death, Life-Threatening, Hospitalization)
  Sender: FDA-Public Use
  Company Number: UA-TEVA-432512USA

PATIENT
  Age: 61 Year
  Sex: Female
  Weight: 82 kg

DRUGS (25)
  1. BENDAMUSTINE [Suspect]
     Indication: CHRONIC LYMPHOCYTIC LEUKAEMIA
     Dosage: ONCE EVERY FOUR WEEKS
     Route: 042
     Dates: start: 20130612
  2. BENDAMUSTINE [Suspect]
     Dosage: ONCE EVERY FOUR WEEKS
     Route: 042
     Dates: start: 20130822
  3. RITUXIMAB [Suspect]
     Indication: CHRONIC LYMPHOCYTIC LEUKAEMIA
     Dosage: ONCE EVERY FOUR WEEKS
     Route: 042
     Dates: start: 20130611
  4. RITUXIMAB [Suspect]
     Dosage: ONCE EVERY FOUR WEEKS
     Route: 042
     Dates: start: 20130821
  5. IBRUTINIB/PLACEBO [Suspect]
     Indication: CHRONIC LYMPHOCYTIC LEUKAEMIA
     Dosage: 420 MILLIGRAM DAILY;
     Route: 048
     Dates: start: 20130612
  6. IBRUTINIB/PLACEBO [Suspect]
     Dosage: 420 MILLIGRAM DAILY;
     Route: 048
     Dates: start: 20130904
  7. NEUROBION [Concomitant]
     Indication: VASCULITIS
     Route: 048
     Dates: start: 20130716
  8. HEPTRAL [Concomitant]
     Indication: ANTIVIRAL PROPHYLAXIS
     Dosage: 400 MILLIGRAM DAILY;
     Route: 048
     Dates: start: 20130805
  9. QUINAX [Concomitant]
     Indication: VITREOUS OPACITIES
     Dosage: 12 GTT DAILY;
     Dates: start: 20130719
  10. DIPHENHYDRAMINE [Concomitant]
     Indication: PYREXIA
     Dosage: 20 MILLIGRAM DAILY;
     Route: 042
     Dates: start: 20130611
  11. DIPHENHYDRAMINE [Concomitant]
     Indication: PREMEDICATION
     Dosage: 50 MILLIGRAM DAILY;
     Route: 042
     Dates: start: 20130710
  12. FLUCONAZOLE [Concomitant]
     Indication: ORAL CANDIDIASIS
     Dosage: 50 MILLIGRAM DAILY;
     Dates: start: 20130805
  13. FLUCONAZOLE [Concomitant]
     Indication: PROPHYLAXIS
     Dosage: 50 MILLIGRAM DAILY;
     Dates: start: 20130904
  14. PARACETAMOL [Concomitant]
     Indication: PREMEDICATION
     Dates: start: 20130711
  15. PARACETAMOL [Concomitant]
     Dates: start: 20130821
  16. PARACETAMOL [Concomitant]
     Dates: start: 20130901
  17. PREDNISOLONE [Concomitant]
     Indication: RESPIRATORY TRACT OEDEMA
     Dates: start: 20130611
  18. PREDNISOLONE [Concomitant]
     Indication: PREMEDICATION
     Dates: start: 20130710
  19. PREDNISOLONE [Concomitant]
     Dates: start: 20130712
  20. PREDNISOLONE [Concomitant]
     Dates: start: 20130821
  21. SIOFOR [Concomitant]
     Dates: start: 20130318
  22. METFORMIN HYDROCHLORIDE [Concomitant]
     Indication: DIABETES MELLITUS
     Dosage: 2000 MILLIGRAM DAILY;
     Route: 048
     Dates: start: 20130318
  23. OMEZ [Concomitant]
     Indication: PROPHYLAXIS AGAINST GASTROINTESTINAL ULCER
     Dosage: 60 MILLIGRAM DAILY;
     Route: 048
     Dates: start: 20130805
  24. CEFODOX [Concomitant]
     Indication: INFECTION PROPHYLAXIS
     Dosage: 400 MILLIGRAM DAILY;
     Route: 048
     Dates: start: 20130904
  25. ESSENTIALE 303 [Concomitant]
     Indication: ANTIVIRAL PROPHYLAXIS
     Dosage: THRICE DAILY
     Dates: start: 20130904

REACTIONS (6)
  - Hypersensitivity vasculitis [Not Recovered/Not Resolved]
  - Multi-organ failure [Fatal]
  - Pneumonia [Not Recovered/Not Resolved]
  - Hepatitis toxic [Not Recovered/Not Resolved]
  - Hyperuricaemia [Recovered/Resolved]
  - Oral candidiasis [Not Recovered/Not Resolved]
